FAERS Safety Report 14327961 (Version 2)
Quarter: 2018Q1

REPORT INFORMATION
  Report Type: Report from Study
  Country: CN (occurrence: CN)
  Receive Date: 20171227
  Receipt Date: 20180309
  Transmission Date: 20180509
  Serious: Yes (Death, Life-Threatening, Hospitalization)
  Sender: FDA-Public Use
  Company Number: CN-BAYER-2017-163073

PATIENT
  Age: 65 Year
  Sex: Female

DRUGS (3)
  1. STIVARGA [Suspect]
     Active Substance: REGORAFENIB
     Indication: COLORECTAL CANCER METASTATIC
     Dosage: 120 MG, QD
     Route: 048
     Dates: start: 2017, end: 20171102
  2. STIVARGA [Suspect]
     Active Substance: REGORAFENIB
     Indication: COLORECTAL CANCER METASTATIC
     Dosage: 120 MG, QD
     Route: 048
     Dates: start: 20170822, end: 20170825
  3. STIVARGA [Suspect]
     Active Substance: REGORAFENIB
     Indication: COLORECTAL CANCER METASTATIC
     Dosage: 120 MG, QD
     Route: 048
     Dates: end: 20180222

REACTIONS (8)
  - Death [Fatal]
  - Lung infection [None]
  - Vomiting [None]
  - Nausea [None]
  - Fatigue [None]
  - Pyrexia [None]
  - Abdominal pain [None]
  - Chest discomfort [Unknown]

NARRATIVE: CASE EVENT DATE: 20170824
